FAERS Safety Report 9543465 (Version 1)
Quarter: 2013Q3

REPORT INFORMATION
  Report Type: Spontaneous
  Country: GB (occurrence: GB)
  Receive Date: 20130923
  Receipt Date: 20130923
  Transmission Date: 20140515
  Serious: Yes (Other)
  Sender: FDA-Public Use
  Company Number: GB-ABBVIE-13P-167-1150148-00

PATIENT
  Sex: 0

DRUGS (1)
  1. ADALIMUMAB [Suspect]
     Indication: COLITIS ULCERATIVE

REACTIONS (1)
  - Colectomy [Unknown]
